FAERS Safety Report 11928557 (Version 1)
Quarter: 2016Q1

REPORT INFORMATION
  Report Type: Spontaneous
  Country: JP (occurrence: JP)
  Receive Date: 20160119
  Receipt Date: 20160119
  Transmission Date: 20160526
  Serious: Yes (Hospitalization, Other)
  Sender: FDA-Public Use
  Company Number: JP-PFIZER INC-2016015779

PATIENT
  Age: 40 Year
  Sex: Female
  Weight: 49 kg

DRUGS (5)
  1. CLINDAMYCIN HCL [Suspect]
     Active Substance: CLINDAMYCIN HYDROCHLORIDE
     Indication: PNEUMONIA
     Dosage: UNK
  2. BENZYLPENICILLIN [Suspect]
     Active Substance: PENICILLIN G
     Indication: PNEUMONIA
     Dosage: UNK
  3. BENZYLPENICILLIN [Suspect]
     Active Substance: PENICILLIN G
     Indication: TOXIC SHOCK SYNDROME STREPTOCOCCAL
  4. IBUPROFEN. [Concomitant]
     Active Substance: IBUPROFEN
     Dosage: ONCE OR TWICE A DAY
     Route: 048
  5. CLINDAMYCIN HCL [Suspect]
     Active Substance: CLINDAMYCIN HYDROCHLORIDE
     Indication: TOXIC SHOCK SYNDROME STREPTOCOCCAL

REACTIONS (3)
  - Pyrexia [Recovered/Resolved]
  - Rash [Recovered/Resolved]
  - Lung disorder [Recovered/Resolved]
